APPROVED DRUG PRODUCT: CARBIDOPA AND LEVODOPA
Active Ingredient: CARBIDOPA; LEVODOPA
Strength: 50MG;200MG
Dosage Form/Route: TABLET, EXTENDED RELEASE;ORAL
Application: A076663 | Product #001
Applicant: KV PHARMACEUTICAL CO
Approved: Jun 24, 2004 | RLD: No | RS: No | Type: DISCN